FAERS Safety Report 4883829-5 (Version None)
Quarter: 2006Q1

REPORT INFORMATION
  Report Type: 
  Country: None (occurrence: None)
  Receive Date: 20060112
  Receipt Date: 20051230
  Transmission Date: 20060701
  Serious: Yes (Hospitalization)
  Sender: FDA-Public Use
  Company Number: 2006MP000007

PATIENT
  Age: 75 Year
  Sex: Female

DRUGS (8)
  1. AGGRASTAT [Suspect]
     Indication: ACUTE CORONARY SYNDROME
     Dosage: 0.4 UG/KG/MIN; IV
     Route: 042
     Dates: start: 20051201, end: 20051201
  2. AGGRASTAT [Suspect]
     Indication: ARTERIOGRAM CORONARY
     Dosage: 0.4 UG/KG/MIN; IV
     Route: 042
     Dates: start: 20051201, end: 20051201
  3. AGGRASTAT [Suspect]
     Indication: ACUTE CORONARY SYNDROME
     Dosage: 0.1 UG/KG/MIN; IV
     Route: 042
     Dates: start: 20051201, end: 20051202
  4. AGGRASTAT [Suspect]
     Indication: ARTERIOGRAM CORONARY
     Dosage: 0.1 UG/KG/MIN; IV
     Route: 042
     Dates: start: 20051201, end: 20051202
  5. HEPARIN SODIUM [Suspect]
     Indication: ACUTE CORONARY SYNDROME
     Dosage: 24000 IU; IV
     Route: 042
     Dates: start: 20051130, end: 20051202
  6. ASPIRIN LYSINE [Concomitant]
  7. CLOPIDOGREL BISULFATE [Concomitant]
  8. CLOPIDOGREL BISULFATE [Concomitant]

REACTIONS (3)
  - ANAEMIA [None]
  - ASTHENIA [None]
  - HAEMATOMA [None]
